FAERS Safety Report 23123586 (Version 3)
Quarter: 2023Q4

REPORT INFORMATION
  Report Type: Report from Study
  Country: US (occurrence: US)
  Receive Date: 20231030
  Receipt Date: 20231227
  Transmission Date: 20240110
  Serious: Yes (Hospitalization)
  Sender: FDA-Public Use
  Company Number: US-NOVOPROD-1120880

PATIENT
  Age: 64 Year
  Sex: Male
  Weight: 100.68 kg

DRUGS (1)
  1. OZEMPIC [Suspect]
     Active Substance: SEMAGLUTIDE
     Indication: Type 2 diabetes mellitus
     Dosage: 1 MG, QW
     Route: 058
     Dates: start: 20230309, end: 202307

REACTIONS (5)
  - Oesophagitis [Not Recovered/Not Resolved]
  - Impaired gastric emptying [Recovered/Resolved]
  - Diarrhoea [Recovered/Resolved]
  - Gastritis [Not Recovered/Not Resolved]
  - Dizziness [Recovered/Resolved]

NARRATIVE: CASE EVENT DATE: 20230301
